FAERS Safety Report 12795831 (Version 1)
Quarter: 2016Q3

REPORT INFORMATION
  Report Type: Spontaneous
  Country: US (occurrence: US)
  Receive Date: 20160929
  Receipt Date: 20160929
  Transmission Date: 20161109
  Serious: Yes (Death, Hospitalization, Other)
  Sender: FDA-Public Use
  Company Number: US-GILEAD-2016-0235618

PATIENT
  Age: 62 Year
  Sex: Male

DRUGS (11)
  1. GABAPENTIN. [Concomitant]
     Active Substance: GABAPENTIN
     Dosage: 600 MG, QHS
  2. PANTOPRAZOLE [Concomitant]
     Active Substance: PANTOPRAZOLE SODIUM
     Dosage: 40 MG, QD
  3. HARVONI [Suspect]
     Active Substance: LEDIPASVIR\SOFOSBUVIR
     Indication: HEPATITIS C
     Route: 065
  4. OXYCODONE [Concomitant]
     Active Substance: OXYCODONE
     Dosage: 5 MG, PRN
  5. VITAMIN C [Concomitant]
     Active Substance: ASCORBIC ACID
     Dosage: 500 MG, BID
  6. NPH INSULIN [Concomitant]
     Active Substance: INSULIN BEEF
     Dosage: 20 UNK, UNK
  7. LISINOPRIL. [Concomitant]
     Active Substance: LISINOPRIL
     Dosage: 20 MG, QD
  8. ATENOLOL. [Concomitant]
     Active Substance: ATENOLOL
     Dosage: 12.5 MG, QD
  9. FERROUS SULFATE. [Concomitant]
     Active Substance: FERROUS SULFATE
     Dosage: 325 MG, BID
  10. SILDENAFIL. [Concomitant]
     Active Substance: SILDENAFIL
     Dosage: 40 MG, TID
  11. FUROSEMIDE. [Concomitant]
     Active Substance: FUROSEMIDE
     Dosage: 200 MG, QD

REACTIONS (15)
  - Blood creatine phosphokinase increased [Unknown]
  - Septic shock [Fatal]
  - Rhabdomyolysis [Unknown]
  - Respiratory failure [Fatal]
  - Metabolic acidosis [Unknown]
  - Hepatic cirrhosis [Fatal]
  - Tibia fracture [Fatal]
  - Blood lactic acid increased [Unknown]
  - Hypotension [Unknown]
  - Pulmonary hypertension [Fatal]
  - Acute kidney injury [Unknown]
  - Hyperkalaemia [Unknown]
  - Fall [Unknown]
  - Multiple fractures [Unknown]
  - Compartment syndrome [Fatal]

NARRATIVE: CASE EVENT DATE: 201609
